FAERS Safety Report 9298998 (Version 1)
Quarter: 2013Q2

REPORT INFORMATION
  Report Type: Spontaneous
  Country: AU (occurrence: AU)
  Receive Date: 20130520
  Receipt Date: 20130520
  Transmission Date: 20140414
  Serious: Yes (Disabling)
  Sender: FDA-Public Use
  Company Number: AU-EISAI INC-E3810-06433-SPO-AU

PATIENT
  Age: 61 Year
  Sex: Female

DRUGS (5)
  1. PARIET (RABEPRAZOLE) [Suspect]
     Indication: GASTROOESOPHAGEAL REFLUX DISEASE
     Dates: start: 20110801, end: 20110805
  2. DEPTRAN [Concomitant]
  3. PARACETAMOL [Concomitant]
  4. SYMBICORT [Concomitant]
     Route: 055
  5. NORMISON [Concomitant]

REACTIONS (1)
  - Muscle spasms [Not Recovered/Not Resolved]
